FAERS Safety Report 15299731 (Version 8)
Quarter: 2021Q4

REPORT INFORMATION
  Report Type: Other
  Country: US (occurrence: None)
  Receive Date: 20180821
  Receipt Date: 20211119
  Transmission Date: 20220303
  Serious: Yes (Hospitalization, Other)
  Sender: FDA-Public Use
  Company Number: US-ROCHE-2168930

PATIENT

DRUGS (2)
  1. OCRELIZUMAB [Suspect]
     Active Substance: OCRELIZUMAB
     Indication: Multiple sclerosis
     Dosage: FIRST COURSE INCLUDED TWO INFUSIONS OF OCRELIZUMAB 300 MG GIVEN 14 DAYS APART.
     Route: 042
  2. OCRELIZUMAB [Suspect]
     Active Substance: OCRELIZUMAB
     Dosage: 600 MG WAS ADMINISTERED INTRAVENOUSLY EVERY 6 MONTHS
     Route: 042

REACTIONS (25)
  - Pneumonia [Unknown]
  - Infusion related reaction [Unknown]
  - Neoplasm malignant [Unknown]
  - Malignant melanoma [Unknown]
  - Infection [Unknown]
  - Basal cell carcinoma [Unknown]
  - Sepsis [Unknown]
  - Urosepsis [Unknown]
  - Breast cancer [Unknown]
  - Upper respiratory tract infection [Unknown]
  - Urinary tract infection [Unknown]
  - Bronchitis [Unknown]
  - Genital herpes [Unknown]
  - Alopecia [Unknown]
  - Lymphopenia [Unknown]
  - Skin disorder [Unknown]
  - Thyroid cancer recurrent [Unknown]
  - Herpes zoster [Unknown]
  - Fatigue [Unknown]
  - Malaise [Unknown]
  - Asthenia [Unknown]
  - Anxiety [Unknown]
  - Depression [Unknown]
  - Headache [Unknown]
  - Oropharyngeal pain [Unknown]
